FAERS Safety Report 4913548-8 (Version None)
Quarter: 2006Q1

REPORT INFORMATION
  Report Type: 
  Country: None (occurrence: None)
  Receive Date: 20060214
  Receipt Date: 20060214
  Transmission Date: 20060701
  Serious: Yes (Other)
  Sender: FDA-Public Use
  Company Number: None

PATIENT
  Sex: Female

DRUGS (5)
  1. OXYCONTIN [Suspect]
     Indication: BACK PAIN
     Dosage: 1-2 PO Q 8 H #180
     Route: 048
     Dates: start: 20050402
  2. OXYCONTIN [Suspect]
     Indication: RADICULOPATHY
     Dosage: 1-2 PO Q 8 H #180
     Route: 048
     Dates: start: 20050402
  3. DILAUDID [Concomitant]
  4. KADIAN [Concomitant]
  5. DURAGESIC-100 [Concomitant]

REACTIONS (6)
  - CONSTIPATION [None]
  - DIARRHOEA [None]
  - DIZZINESS [None]
  - MIGRAINE [None]
  - NAUSEA [None]
  - THERAPEUTIC RESPONSE UNEXPECTED WITH DRUG SUBSTITUTION [None]
